FAERS Safety Report 17015829 (Version 1)
Quarter: 2019Q4

REPORT INFORMATION
  Report Type: Spontaneous
  Country: FR (occurrence: FR)
  Receive Date: 20191111
  Receipt Date: 20191111
  Transmission Date: 20200122
  Serious: Yes (Other)
  Sender: FDA-Public Use
  Company Number: FR-ROCHE-2464845

PATIENT
  Age: 35 Year
  Sex: Female

DRUGS (16)
  1. VITAMIN B9 [Concomitant]
     Route: 042
  2. HEPARIN [Concomitant]
     Active Substance: HEPARIN SODIUM
  3. PREDNISONE. [Suspect]
     Active Substance: PREDNISONE
     Indication: B-CELL TYPE ACUTE LEUKAEMIA
     Dosage: PROPHASE
     Route: 065
  4. DOXORUBICIN [Suspect]
     Active Substance: DOXORUBICIN
     Indication: B-CELL TYPE ACUTE LEUKAEMIA
     Dosage: D1
     Route: 065
  5. VINCRISTINE [Suspect]
     Active Substance: VINCRISTINE
     Indication: B-CELL TYPE ACUTE LEUKAEMIA
     Dosage: 1.4 MG/M2 UP TO MAXIMUM 2MG (D1)
     Route: 065
  6. HYDROCORTISONE. [Concomitant]
     Active Substance: HYDROCORTISONE
     Route: 037
  7. CYCLOPHOSPHAMIDE. [Suspect]
     Active Substance: CYCLOPHOSPHAMIDE
     Indication: B-CELL TYPE ACUTE LEUKAEMIA
     Dosage: D1
     Route: 065
  8. ROMIPLOSTIM [Concomitant]
     Active Substance: ROMIPLOSTIM
     Route: 058
  9. IRON [Concomitant]
     Active Substance: IRON
     Route: 042
  10. RITUXIMAB. [Suspect]
     Active Substance: RITUXIMAB
     Indication: B-CELL TYPE ACUTE LEUKAEMIA
     Dosage: D1
     Route: 041
  11. DARBEPOETIN ALFA [Concomitant]
     Active Substance: DARBEPOETIN ALFA
     Route: 058
  12. FILGRASTIM [Concomitant]
     Active Substance: FILGRASTIM
     Route: 042
  13. METHOTREXATE. [Concomitant]
     Active Substance: METHOTREXATE
     Route: 037
  14. CYTARABINE. [Concomitant]
     Active Substance: CYTARABINE
     Route: 037
  15. PREDNISONE. [Suspect]
     Active Substance: PREDNISONE
     Dosage: D1 TO D5
     Route: 065
  16. L-ASPARAGINASE [Concomitant]
     Active Substance: ASPARAGINASE
     Indication: B-CELL TYPE ACUTE LEUKAEMIA
     Dosage: 6000 UI/M2 AT DAYS 8, 10, 12, 16, 18, 20, 22 AND 24
     Route: 065

REACTIONS (5)
  - Escherichia bacteraemia [Unknown]
  - Headache [Unknown]
  - Deep vein thrombosis [Unknown]
  - Anaemia [Unknown]
  - Dyspnoea [Unknown]
